FAERS Safety Report 17345642 (Version 1)
Quarter: 2020Q1

REPORT INFORMATION
  Report Type: Spontaneous
  Country: DE (occurrence: DE)
  Receive Date: 20200129
  Receipt Date: 20200129
  Transmission Date: 20200409
  Serious: Yes (Hospitalization)
  Sender: FDA-Public Use
  Company Number: DE-TEVA-2020-DE-1175192

PATIENT
  Age: 79 Year
  Sex: Male
  Weight: 112 kg

DRUGS (5)
  1. PIRITRAMIDE [Suspect]
     Active Substance: PIRITRAMIDE
     Route: 065
  2. MELPERONE [Concomitant]
     Active Substance: MELPERONE
     Route: 065
  3. BISOPROLOL [Concomitant]
     Active Substance: BISOPROLOL
     Route: 065
  4. MORPHINE [Suspect]
     Active Substance: MORPHINE
     Route: 065
  5. FENTANYL. [Suspect]
     Active Substance: FENTANYL
     Dosage: 25 UG/H
     Route: 062

REACTIONS (2)
  - Pulmonary oedema [Unknown]
  - Toxicity to various agents [Unknown]
